FAERS Safety Report 14586953 (Version 2)
Quarter: 2018Q1

REPORT INFORMATION
  Report Type: Spontaneous
  Country: DE (occurrence: DE)
  Receive Date: 20180301
  Receipt Date: 20180308
  Transmission Date: 20180509
  Serious: Yes (Other)
  Sender: FDA-Public Use
  Company Number: DE-PFIZER INC-2018084013

PATIENT
  Age: 48 Year
  Sex: Female
  Weight: 62 kg

DRUGS (5)
  1. ARCOXIA [Suspect]
     Active Substance: ETORICOXIB
     Indication: INTERVERTEBRAL DISC DISORDER
     Dosage: 3 DF, 1X/DAY
     Route: 065
  2. DEXAMETHASONE. [Concomitant]
     Active Substance: DEXAMETHASONE
     Dosage: 8 MG, UNK
     Dates: start: 20170927, end: 20170930
  3. ARCOXIA [Suspect]
     Active Substance: ETORICOXIB
     Dosage: 3 DF, DAILY
     Route: 065
     Dates: start: 20170927, end: 20170929
  4. PANTOPRAZOLE [Suspect]
     Active Substance: PANTOPRAZOLE
     Indication: PROPHYLAXIS AGAINST GASTROINTESTINAL ULCER
     Dosage: 1 DF, 1X/DAY
     Route: 065
     Dates: start: 20170927, end: 20170929
  5. NORFLEX [Suspect]
     Active Substance: ORPHENADRINE CITRATE
     Dosage: 2 DF, 1X/DAY
     Route: 065
     Dates: start: 20170927, end: 20170929

REACTIONS (21)
  - Parosmia [Recovered/Resolved]
  - Tremor [Recovered/Resolved]
  - Fatigue [Recovered/Resolved]
  - Arthralgia [Unknown]
  - Anxiety [Recovered/Resolved]
  - Dizziness [Recovered/Resolved]
  - Memory impairment [Recovered/Resolved]
  - Haemorrhoids [Unknown]
  - Dry mouth [Recovered/Resolved]
  - Hypoaesthesia [Recovered/Resolved]
  - Irritable bowel syndrome [Recovered/Resolved]
  - Dysgeusia [Recovered/Resolved]
  - Paraesthesia [Recovered/Resolved]
  - Dyspnoea [Recovered/Resolved]
  - Asthenia [Recovered/Resolved]
  - Confusional state [Recovered/Resolved]
  - Vision blurred [Recovered/Resolved]
  - Heart rate increased [Recovered/Resolved]
  - Hot flush [Recovered/Resolved]
  - Disturbance in attention [Recovered/Resolved]
  - Disorientation [Recovered/Resolved]

NARRATIVE: CASE EVENT DATE: 20170930
